FAERS Safety Report 4638492-5 (Version None)
Quarter: 2005Q2

REPORT INFORMATION
  Report Type: 
  Country: None (occurrence: None)
  Receive Date: 20050418
  Receipt Date: 20050329
  Transmission Date: 20051028
  Serious: Yes (Death, Life-Threatening, Hospitalization, Disabling)
  Sender: FDA-Public Use
  Company Number: US_0501111259

PATIENT
  Age: 53 Year
  Sex: Male
  Weight: 65 kg

DRUGS (12)
  1. XIGRIS [Suspect]
     Indication: SEPSIS
     Dosage: 24 UG/KG/HR/36 HOURS
     Dates: start: 20050117, end: 20050119
  2. OMEPRAZOL (OMEPRAZOLE RATHIOPHARM) [Concomitant]
  3. CEFTRIAXONE [Concomitant]
  4. METRONIDAZOLE [Concomitant]
  5. CHLORAMPHENICOL [Concomitant]
  6. TRAMADOL HCL [Concomitant]
  7. ALBUMIN NOS [Concomitant]
  8. HYDROCORTISONE [Concomitant]
  9. VITMAIN K [Concomitant]
  10. PROPOFOL [Concomitant]
  11. CAPTOPRIL [Concomitant]
  12. TPN [Concomitant]

REACTIONS (1)
  - CEREBRAL HAEMORRHAGE [None]
